FAERS Safety Report 25172283 (Version 2)
Quarter: 2025Q2

REPORT INFORMATION
  Report Type: Spontaneous
  Country: US (occurrence: US)
  Receive Date: 20250408
  Receipt Date: 20250505
  Transmission Date: 20250716
  Serious: No
  Sender: BRISTOL-MYERS SQUIBB COMPANY
  Company Number: US-BRISTOL-MYERS SQUIBB COMPANY-2025-051276

PATIENT
  Age: 69 Year
  Sex: Male
  Weight: 69.85 kg

DRUGS (5)
  1. REVLIMID [Suspect]
     Active Substance: LENALIDOMIDE
     Indication: Plasma cell myeloma
     Route: 048
  2. ACYCLOVIR [Concomitant]
     Active Substance: ACYCLOVIR
     Indication: Product used for unknown indication
  3. BACTRIM DS [Concomitant]
     Active Substance: SULFAMETHOXAZOLE\TRIMETHOPRIM
     Indication: Product used for unknown indication
  4. CYCLOPHOSPHAMIDE [Concomitant]
     Active Substance: CYCLOPHOSPHAMIDE
     Indication: Product used for unknown indication
  5. DARZALEX FASPRO [DARATUMUMAB] [Concomitant]
     Indication: Product used for unknown indication

REACTIONS (5)
  - Rash [Recovering/Resolving]
  - Dry skin [Recovering/Resolving]
  - Pruritus [Unknown]
  - Abdominal pain upper [Unknown]
  - Ageusia [Unknown]

NARRATIVE: CASE EVENT DATE: 20250327
